FAERS Safety Report 8273516-8 (Version None)
Quarter: 2012Q2

REPORT INFORMATION
  Report Type: 
  Country: None (occurrence: None)
  Receive Date: 20120409
  Receipt Date: 20120409
  Transmission Date: 20120825
  Serious: Yes (Hospitalization, Other)
  Sender: FDA-Public Use
  Company Number: None

PATIENT
  Age: 64 Year
  Sex: Male
  Weight: 81.1 kg

DRUGS (1)
  1. TREANDA [Suspect]
     Indication: T-CELL LYMPHOMA
     Dosage: 175 MG OTHER IV
     Route: 042
     Dates: start: 20110331, end: 20110524

REACTIONS (9)
  - DECREASED APPETITE [None]
  - HYPOTENSION [None]
  - WHITE BLOOD CELL COUNT INCREASED [None]
  - ASTHENIA [None]
  - TACHYCARDIA [None]
  - PYREXIA [None]
  - CHILLS [None]
  - SEPSIS [None]
  - DIARRHOEA [None]
